FAERS Safety Report 15093941 (Version 1)
Quarter: 2018Q2

REPORT INFORMATION
  Report Type: Report from Study
  Country: US (occurrence: US)
  Receive Date: 20180629
  Receipt Date: 20180629
  Transmission Date: 20180711
  Serious: Yes (Other)
  Sender: FDA-Public Use
  Company Number: US-TESARO, INC-US-2018TSO03214

PATIENT

DRUGS (1)
  1. ZEJULA [Suspect]
     Active Substance: NIRAPARIB
     Indication: OVARIAN CANCER
     Dosage: 300 MG, QD
     Route: 048
     Dates: start: 20170922

REACTIONS (6)
  - Haemoglobin decreased [Recovering/Resolving]
  - Laboratory test abnormal [Unknown]
  - Stent placement [Unknown]
  - Bladder disorder [Unknown]
  - Urinary tract infection [Unknown]
  - Dry mouth [Unknown]
